FAERS Safety Report 9762863 (Version 1)
Quarter: 2013Q4

REPORT INFORMATION
  Report Type: Spontaneous
  Country: US (occurrence: US)
  Receive Date: 20131216
  Receipt Date: 20131216
  Transmission Date: 20140711
  Serious: Yes (Hospitalization)
  Sender: FDA-Public Use
  Company Number: US-B.I. PHARMACEUTICALS,INC./RIDGEFIELD-2013-BI-41365BP

PATIENT
  Age: 48 Year
  Sex: Male
  Weight: 93 kg

DRUGS (10)
  1. SPIRIVA [Suspect]
     Indication: CHRONIC OBSTRUCTIVE PULMONARY DISEASE
     Dosage: 18 MCG
     Route: 055
     Dates: start: 2011
  2. ADVAIR [Concomitant]
     Route: 055
  3. ALBUTEROL SULFATE [Concomitant]
     Route: 055
  4. CLARITIN [Concomitant]
     Route: 048
  5. DILTIAZEM [Concomitant]
     Route: 048
  6. LORAZEPAM [Concomitant]
     Route: 048
  7. NEXIUM [Concomitant]
     Route: 048
  8. PREDNISONE [Concomitant]
     Route: 048
  9. RANITIDINE [Concomitant]
     Route: 048
  10. SIMVASTATIN [Concomitant]
     Route: 048

REACTIONS (1)
  - Dyspnoea [Not Recovered/Not Resolved]
